FAERS Safety Report 5284780-1 (Version None)
Quarter: 2007Q2

REPORT INFORMATION
  Report Type: 
  Country: None (occurrence: None)
  Receive Date: 20070403
  Receipt Date: 20070322
  Transmission Date: 20071010
  Serious: Yes (Death)
  Sender: FDA-Public Use
  Company Number: GB-GILEAD-2006-0009054

PATIENT
  Sex: Male
  Weight: 70 kg

DRUGS (10)
  1. VIREAD [Suspect]
     Indication: HIV INFECTION
     Route: 048
     Dates: start: 20041116, end: 20051227
  2. DIDANOSINE [Suspect]
     Indication: HIV INFECTION
     Route: 048
     Dates: start: 20041116, end: 20051227
  3. ZIDOVUDINE [Suspect]
     Indication: HIV INFECTION
     Route: 048
     Dates: start: 20050701, end: 20051227
  4. KALETRA [Suspect]
     Indication: HIV INFECTION
     Route: 048
     Dates: start: 20041116, end: 20051227
  5. COTRIM [Concomitant]
     Route: 048
     Dates: start: 20051101
  6. METOCLOPRAMIDE [Concomitant]
     Route: 048
     Dates: start: 20051220
  7. DICLOFENAC SODIUM [Concomitant]
     Indication: POST HERPETIC NEURALGIA
     Route: 048
     Dates: start: 20051219, end: 20051226
  8. GABAPENTIN [Concomitant]
     Indication: POST HERPETIC NEURALGIA
     Route: 048
     Dates: start: 20051123, end: 20051226
  9. ACYCLOVIR [Concomitant]
  10. MS CONTIN [Concomitant]
     Indication: POST HERPETIC NEURALGIA
     Route: 048
     Dates: start: 20051123, end: 20051226

REACTIONS (2)
  - LACTIC ACIDOSIS [None]
  - RENAL FAILURE ACUTE [None]
